FAERS Safety Report 8369560-2 (Version None)
Quarter: 2012Q2

REPORT INFORMATION
  Report Type: 
  Country: None (occurrence: None)
  Receive Date: 20120518
  Receipt Date: 20120515
  Transmission Date: 20120825
  Serious: No
  Sender: FDA-Public Use
  Company Number: PHFR2012GB002563

PATIENT
  Sex: Female

DRUGS (1)
  1. TEGRETOL [Suspect]
     Indication: FEBRILE CONVULSION
     Dosage: 2.25 ML, BID
     Route: 048

REACTIONS (1)
  - FEBRILE CONVULSION [None]
